FAERS Safety Report 6929995-9 (Version None)
Quarter: 2010Q3

REPORT INFORMATION
  Report Type: 
  Country: None (occurrence: None)
  Receive Date: 20100818
  Receipt Date: 20100809
  Transmission Date: 20110219
  Serious: Yes (Hospitalization)
  Sender: FDA-Public Use
  Company Number: FR-PFIZER INC-2010099529

PATIENT
  Age: 71 Year
  Sex: Female

DRUGS (8)
  1. CLINDAMYCIN HCL [Suspect]
     Dosage: UNK
     Route: 042
     Dates: start: 20100706, end: 20100706
  2. ROPIVACAINE [Suspect]
     Dosage: UNK
     Dates: start: 20100706, end: 20100706
  3. PROPOFOL [Suspect]
     Dosage: UNK
     Route: 042
     Dates: start: 20100706, end: 20100706
  4. ULTIVA [Suspect]
     Dosage: UNK
     Route: 042
     Dates: start: 20100706, end: 20100706
  5. CORGARD [Concomitant]
  6. LASIX [Concomitant]
  7. ZOPICLONE [Concomitant]
  8. LANTUS [Concomitant]

REACTIONS (1)
  - ANAPHYLACTIC SHOCK [None]
